FAERS Safety Report 12745796 (Version 2)
Quarter: 2016Q4

REPORT INFORMATION
  Report Type: Spontaneous
  Country: US (occurrence: US)
  Receive Date: 20160915
  Receipt Date: 20161020
  Transmission Date: 20170207
  Serious: Yes (Death, Other)
  Sender: FDA-Public Use
  Company Number: US-WEST-WARD PHARMACEUTICALS CORP.-US-H14001-16-01793

PATIENT
  Age: 68 Year
  Sex: Male
  Weight: 112.5 kg

DRUGS (9)
  1. MORPHINE [Suspect]
     Active Substance: MORPHINE
     Indication: DYSPNOEA
     Route: 042
  2. DUONEB [Concomitant]
     Active Substance: ALBUTEROL SULFATE\IPRATROPIUM BROMIDE
     Indication: PNEUMONIA
     Route: 065
     Dates: start: 20160812
  3. LINEZOLID. [Concomitant]
     Active Substance: LINEZOLID
     Indication: PNEUMONIA
     Route: 065
     Dates: start: 20160812
  4. XALCORI [Concomitant]
     Indication: LUNG ADENOCARCINOMA
     Route: 048
     Dates: start: 20160726, end: 20160812
  5. OXYGEN. [Concomitant]
     Active Substance: OXYGEN
     Indication: PRODUCT USED FOR UNKNOWN INDICATION
     Dates: start: 20160812
  6. AZTREONUM [Concomitant]
     Indication: PNEUMONIA
     Route: 065
     Dates: start: 20160812
  7. LASIX [Concomitant]
     Active Substance: FUROSEMIDE
     Indication: PNEUMONIA
     Route: 065
     Dates: start: 20160812
  8. ATIVAN [Suspect]
     Active Substance: LORAZEPAM
     Indication: ANXIETY
     Route: 042
  9. ROMIPLOSTIM [Concomitant]
     Active Substance: ROMIPLOSTIM
     Indication: IMMUNE THROMBOCYTOPENIC PURPURA
     Route: 058
     Dates: start: 1995

REACTIONS (6)
  - Mental status changes [Unknown]
  - Agitation [Unknown]
  - Delirium [Unknown]
  - Off label use [Unknown]
  - Pneumonia [Fatal]
  - Confusional state [Unknown]

NARRATIVE: CASE EVENT DATE: 20160816
